FAERS Safety Report 4644591-4 (Version None)
Quarter: 2005Q2

REPORT INFORMATION
  Report Type: 
  Country: None (occurrence: None)
  Receive Date: 20050425
  Receipt Date: 20050425
  Transmission Date: 20051028
  Serious: Yes (Hospitalization, Other)
  Sender: FDA-Public Use
  Company Number: None

PATIENT
  Age: 48 Year
  Sex: Male

DRUGS (1)
  1. FLOXURIDINE [Suspect]

REACTIONS (3)
  - ADVERSE DRUG REACTION [None]
  - HEPATIC ENZYME ABNORMAL [None]
  - JAUNDICE [None]
